FAERS Safety Report 4767110-0 (Version None)
Quarter: 2005Q3

REPORT INFORMATION
  Report Type: 
  Country: None (occurrence: None)
  Receive Date: 20050906
  Receipt Date: 20050708
  Transmission Date: 20060218
  Serious: No
  Sender: FDA-Public Use
  Company Number: 2005-BP-11567BP

PATIENT
  Sex: Male

DRUGS (6)
  1. SPIRIVA [Suspect]
     Indication: CHRONIC OBSTRUCTIVE PULMONARY DISEASE
     Dosage: 18 MG (18 MG, QD), IH
     Route: 055
     Dates: start: 20050702, end: 20050706
  2. LISINOPRIL [Concomitant]
  3. LASIX [Concomitant]
  4. WARFARIN SODIUM [Concomitant]
  5. BENADRYL [Concomitant]
  6. DUCOSATE SODIUM [Concomitant]

REACTIONS (1)
  - URTICARIA [None]
